FAERS Safety Report 9690878 (Version 2)
Quarter: 2013Q4

REPORT INFORMATION
  Report Type: Spontaneous
  Country: US (occurrence: US)
  Receive Date: 20131115
  Receipt Date: 20131212
  Transmission Date: 20140711
  Serious: Yes (Other)
  Sender: FDA-Public Use
  Company Number: PHEH2013US023574

PATIENT
  Age: 52 Year
  Sex: Female

DRUGS (9)
  1. DIOVAN [Suspect]
     Dosage: UNK UKN, UNK
     Dates: start: 2001
  2. DIOVAN [Suspect]
     Dosage: UNK UKN, UNK
  3. DIOVAN HCT [Suspect]
     Indication: HYPERTENSION
     Dosage: 1 DF, (320 MG VALS, 25 MG HYDR)
     Route: 048
  4. HYDROCHLOROTHIAZIDE,VALSARTAN [Suspect]
     Dosage: UNK UKN, UNK
     Dates: start: 2007, end: 201210
  5. BABY ASPIRIN [Concomitant]
  6. ZANTAC [Concomitant]
  7. ARIMIDEX [Concomitant]
  8. CALCIUM [Concomitant]
  9. VITAMIN D [Concomitant]

REACTIONS (6)
  - Breast cancer [Unknown]
  - Blood pressure systolic increased [Unknown]
  - Malaise [Unknown]
  - General physical health deterioration [Unknown]
  - Dizziness [Unknown]
  - Drug ineffective [Unknown]
